FAERS Safety Report 5092629-5 (Version None)
Quarter: 2006Q3

REPORT INFORMATION
  Report Type: 
  Country: None (occurrence: None)
  Receive Date: 20060830
  Receipt Date: 20060829
  Transmission Date: 20061208
  Serious: Yes (Death, Hospitalization, Other)
  Sender: FDA-Public Use
  Company Number: NSADSS2003007578

PATIENT
  Sex: Male
  Weight: 63.5 kg

DRUGS (19)
  1. REMICADE [Suspect]
     Route: 041
  2. REMICADE [Suspect]
     Route: 041
  3. REMICADE [Suspect]
     Route: 041
  4. REMICADE [Suspect]
     Route: 041
  5. REMICADE [Suspect]
     Route: 041
  6. REMICADE [Suspect]
     Route: 041
  7. REMICADE [Suspect]
     Route: 041
  8. REMICADE [Suspect]
     Route: 041
  9. REMICADE [Suspect]
     Route: 041
  10. REMICADE [Suspect]
     Route: 041
  11. REMICADE [Suspect]
     Route: 041
  12. REMICADE [Suspect]
     Route: 041
  13. REMICADE [Suspect]
     Indication: CROHN'S DISEASE
     Route: 041
  14. AZATHIOPRINE [Concomitant]
     Indication: CROHN'S DISEASE
     Route: 048
     Dates: end: 20030208
  15. FOSAMAX [Concomitant]
     Route: 048
  16. 6-MP [Concomitant]
     Dosage: 25MG AM, 25MG PM
  17. IMURAN [Concomitant]
  18. PRILOSEC [Concomitant]
  19. PREDNISONE TAB [Concomitant]

REACTIONS (36)
  - ASCITES [None]
  - BACTERIAL INFECTION [None]
  - BURNING SENSATION [None]
  - CLOSTRIDIUM DIFFICILE COLITIS [None]
  - CORD BLOOD TRANSPLANT THERAPY [None]
  - DEPRESSION [None]
  - DISORIENTATION [None]
  - DRUG TOXICITY [None]
  - DYSPHAGIA [None]
  - EPISTAXIS [None]
  - EPSTEIN-BARR VIRUS INFECTION [None]
  - FATIGUE [None]
  - FEBRILE NEUTROPENIA [None]
  - GALLBLADDER DISORDER [None]
  - HYPOMAGNESAEMIA [None]
  - HYPONATRAEMIA [None]
  - HYPOTENSION [None]
  - LARYNGITIS [None]
  - LEUKOCYTOCLASTIC VASCULITIS [None]
  - METASTATIC NEOPLASM [None]
  - MUSCLE ATROPHY [None]
  - NIGHT SWEATS [None]
  - PANCREATITIS [None]
  - PERICARDIAL EFFUSION [None]
  - PULMONARY HAEMORRHAGE [None]
  - PULMONARY OEDEMA [None]
  - RENAL FAILURE [None]
  - RESPIRATORY DISTRESS [None]
  - SINUS HEADACHE [None]
  - STEM CELL TRANSPLANT [None]
  - T-CELL LYMPHOMA [None]
  - TACHYCARDIA [None]
  - THIRST [None]
  - VARICELLA ZOSTER VIRUS SEROLOGY POSITIVE [None]
  - VISION BLURRED [None]
  - WEIGHT DECREASED [None]
